FAERS Safety Report 5893551-4 (Version None)
Quarter: 2008Q3

REPORT INFORMATION
  Report Type: 
  Country: None (occurrence: None)
  Receive Date: 20080923
  Receipt Date: 20080917
  Transmission Date: 20090109
  Serious: Yes (Death)
  Sender: FDA-Public Use
  Company Number: US-JNJFOC-20080904827

PATIENT
  Age: 29 Year
  Sex: Male

DRUGS (4)
  1. TRAMADOL HCL [Suspect]
     Indication: PAIN
  2. PAROXETINE HCL [Suspect]
     Indication: PAIN
  3. MORPHINE [Suspect]
     Indication: PAIN
  4. SEROQUEL [Suspect]
     Indication: PAIN

REACTIONS (1)
  - DEATH [None]
